FAERS Safety Report 17534535 (Version 1)
Quarter: 2020Q1

REPORT INFORMATION
  Report Type: Spontaneous
  Country: DE (occurrence: DE)
  Receive Date: 20200312
  Receipt Date: 20200312
  Transmission Date: 20200409
  Serious: Yes (Other)
  Sender: FDA-Public Use
  Company Number: DE-ASTRAZENECA-2020SE34588

PATIENT
  Age: 25032 Day
  Sex: Female

DRUGS (9)
  1. FASENRA [Suspect]
     Active Substance: BENRALIZUMAB
     Indication: ASTHMA
     Route: 058
     Dates: start: 20191024
  2. NASONEX [Concomitant]
     Active Substance: MOMETASONE FUROATE
     Dosage: 1-0-1
  3. NUCALA [Concomitant]
     Active Substance: MEPOLIZUMAB
  4. OMEP [Concomitant]
     Active Substance: OMEPRAZOLE
  5. NOVOPULMON [Concomitant]
     Active Substance: BUDESONIDE
     Dosage: 2-0-2
  6. FORMATRIS [Concomitant]
     Active Substance: FORMOTEROL FUMARATE
     Dosage: 1-0-0
  7. EUTHYROX [Concomitant]
     Active Substance: LEVOTHYROXINE SODIUM
  8. SALBUTAMOL [Concomitant]
     Active Substance: ALBUTEROL
     Dosage: IF REQUIRED
  9. SPIRIVA [Concomitant]
     Active Substance: TIOTROPIUM BROMIDE MONOHYDRATE
     Dosage: 2-0-0,

REACTIONS (10)
  - Anosmia [Recovered/Resolved]
  - Dysphonia [Unknown]
  - Ear swelling [Unknown]
  - Nasal oedema [Unknown]
  - Pharyngeal swelling [Unknown]
  - Ageusia [Unknown]
  - Night sweats [Unknown]
  - Bacterial infection [Unknown]
  - Fungal infection [Unknown]
  - Headache [Recovering/Resolving]

NARRATIVE: CASE EVENT DATE: 20191219
